FAERS Safety Report 7842343-5 (Version None)
Quarter: 2011Q4

REPORT INFORMATION
  Report Type: 
  Country: None (occurrence: None)
  Receive Date: 20111025
  Receipt Date: 20111014
  Transmission Date: 20120403
  Serious: Yes (Other)
  Sender: FDA-Public Use
  Company Number: US-JNJFOC-20111006953

PATIENT
  Sex: Male
  Weight: 62.8 kg

DRUGS (6)
  1. METHOTREXATE [Concomitant]
  2. PREDNISONE [Concomitant]
  3. INFLIXIMAB, RECOMBINANT [Suspect]
     Indication: INFLAMMATORY BOWEL DISEASE
     Route: 042
     Dates: start: 20110825
  4. INFLIXIMAB, RECOMBINANT [Suspect]
     Route: 042
     Dates: start: 20110909
  5. OMEPRAZOLE [Concomitant]
  6. FOLIC ACID [Concomitant]

REACTIONS (2)
  - VISUAL IMPAIRMENT [None]
  - PERICARDITIS [None]
